FAERS Safety Report 7081225-6 (Version None)
Quarter: 2010Q4

REPORT INFORMATION
  Report Type: 
  Country: None (occurrence: None)
  Receive Date: 20101102
  Receipt Date: 20101102
  Transmission Date: 20110411
  Serious: Yes (Hospitalization)
  Sender: FDA-Public Use
  Company Number: None

PATIENT
  Age: 72 Year
  Sex: Male
  Weight: 72 kg

DRUGS (16)
  1. GLYBURIDE [Suspect]
     Indication: TYPE 2 DIABETES MELLITUS
     Dosage: 10 MG BID PO
     Route: 048
  2. JANUVIA [Suspect]
     Indication: TYPE 2 DIABETES MELLITUS
     Dosage: 25 MG DAILY PO
     Route: 048
  3. GEMFIBROZIL [Concomitant]
  4. COLCHICINE [Concomitant]
  5. CLONAZEPAM [Concomitant]
  6. GLYBURIDE [Concomitant]
  7. ASPIRIN [Concomitant]
  8. ASCORBIC ACID [Concomitant]
  9. VITAMIN E [Concomitant]
  10. MULTI-VITAMIN [Concomitant]
  11. VITAMIN D [Concomitant]
  12. LIPITOR [Concomitant]
  13. SOTALOL [Concomitant]
  14. ALLOPURINOL [Concomitant]
  15. LISINOPRIL [Concomitant]
  16. JANUVIA [Concomitant]

REACTIONS (3)
  - AMNESIA [None]
  - BLOOD GLUCOSE DECREASED [None]
  - FALL [None]
